FAERS Safety Report 4579559-X (Version None)
Quarter: 2005Q1

REPORT INFORMATION
  Report Type: 
  Country: None (occurrence: None)
  Receive Date: 20050214
  Receipt Date: 20050202
  Transmission Date: 20050727
  Serious: Yes (Hospitalization)
  Sender: FDA-Public Use
  Company Number: BE-JNJFOC-20050105634

PATIENT
  Sex: Male

DRUGS (1)
  1. REMICADE [Suspect]
     Indication: CROHN'S DISEASE
     Dosage: INFUSIONS ADMINISTERED IN JAN-2003, AT WEEKS 0, 2 AND 6.  3 IN TOTAL.
     Route: 042

REACTIONS (1)
  - ENDOCARDITIS [None]
